FAERS Safety Report 17752517 (Version 2)
Quarter: 2020Q2

REPORT INFORMATION
  Report Type: Spontaneous
  Country: GB (occurrence: GB)
  Receive Date: 20200506
  Receipt Date: 20200508
  Transmission Date: 20200714
  Serious: Yes (Death, Other)
  Sender: FDA-Public Use
  Company Number: GB-PFIZER INC-2020180083

PATIENT
  Age: 50 Year
  Sex: Female

DRUGS (6)
  1. ONDANSETRON HYDROCHLORIDE. [Interacting]
     Active Substance: ONDANSETRON HYDROCHLORIDE
     Indication: VOMITING
     Dosage: UNK
  2. MORPHINE [Interacting]
     Active Substance: MORPHINE
     Indication: ABDOMINAL PAIN UPPER
  3. CYCLIZINE [Interacting]
     Active Substance: CYCLIZINE
     Dosage: UNK
  4. AMLODIPINE BESILATE [Suspect]
     Active Substance: AMLODIPINE BESYLATE
     Dosage: UNK
  5. MORPHINE [Interacting]
     Active Substance: MORPHINE
     Indication: CHEST PAIN
     Dosage: 5-10MG THREE TIMES IN 45 MINUTES. MAX TOTAL DOSE 30MG
     Route: 042
  6. ONDANSETRON HYDROCHLORIDE. [Interacting]
     Active Substance: ONDANSETRON HYDROCHLORIDE
     Indication: SYNCOPE

REACTIONS (8)
  - Cardiac arrest [Fatal]
  - Vomiting [Recovered/Resolved]
  - Syncope [Recovered/Resolved]
  - Respiratory arrest [Fatal]
  - Unresponsive to stimuli [Fatal]
  - Hypotension [Fatal]
  - Bradycardia [Fatal]
  - Drug interaction [Unknown]

NARRATIVE: CASE EVENT DATE: 201501
